FAERS Safety Report 8709514 (Version 3)
Quarter: 2013Q2

REPORT INFORMATION
  Report Type: Spontaneous
  Country: US (occurrence: US)
  Receive Date: 20120806
  Receipt Date: 20130429
  Transmission Date: 20140414
  Serious: Yes (Hospitalization, Other)
  Sender: FDA-Public Use
  Company Number: US-MERCK-1207USA012030

PATIENT
  Sex: Female
  Weight: 55.33 kg

DRUGS (7)
  1. FOSAMAX [Suspect]
     Indication: OSTEOPOROSIS
     Dosage: 10 MG, QD
     Route: 048
     Dates: start: 19970325, end: 20030107
  2. FOSAMAX [Suspect]
     Dosage: 70 MG, QW
     Route: 048
     Dates: start: 20030107, end: 20070905
  3. CENTRUM SILVER ULTRA WOMENS [Concomitant]
     Dosage: UNK
     Dates: start: 1990
  4. Q-PAP EXTRA STRENGTH [Concomitant]
     Indication: ARTHRITIS
     Dosage: UNK
     Dates: start: 2005
  5. ENABLEX [Concomitant]
     Indication: INCONTINENCE
     Dosage: UNK
     Dates: start: 1990
  6. CHONDROITIN SULFATE SODIUM (+) GLUCOSAMINE SULFATE [Concomitant]
     Indication: ARTHRITIS
     Dosage: UNK
     Dates: start: 2000
  7. PREMARIN [Concomitant]
     Indication: POSTMENOPAUSE
     Dosage: UNK
     Dates: start: 1970, end: 201211

REACTIONS (35)
  - Femur fracture [Unknown]
  - Intramedullary rod insertion [Unknown]
  - Impaired healing [Unknown]
  - Basal cell carcinoma [Unknown]
  - Intraductal proliferative breast lesion [Unknown]
  - Shoulder arthroplasty [Unknown]
  - Shoulder arthroplasty [Unknown]
  - Cystocele repair [Unknown]
  - Oophorectomy [Unknown]
  - Venous operation [Unknown]
  - Benign breast lump removal [Unknown]
  - Medical device implantation [Unknown]
  - Venous operation [Unknown]
  - Rib fracture [Unknown]
  - Spinal fracture [Unknown]
  - Tooth fracture [Unknown]
  - Tooth extraction [Unknown]
  - Dental implantation [Unknown]
  - Anaemia [Unknown]
  - Angiopathy [Unknown]
  - Oedema [Unknown]
  - Onychomycosis [Unknown]
  - Pneumonia [Unknown]
  - Venous insufficiency [Not Recovered/Not Resolved]
  - Phlebitis superficial [Unknown]
  - Dyspnoea exertional [Unknown]
  - Chest pain [Unknown]
  - Fall [Unknown]
  - Cystitis [Unknown]
  - Hypertension [Unknown]
  - Cough [Unknown]
  - Hiatus hernia [Unknown]
  - Gastrooesophageal reflux disease [Unknown]
  - Back pain [Not Recovered/Not Resolved]
  - Arthralgia [Not Recovered/Not Resolved]
